FAERS Safety Report 5465458-8 (Version None)
Quarter: 2007Q3

REPORT INFORMATION
  Report Type: 
  Country: None (occurrence: None)
  Receive Date: 20070920
  Receipt Date: 20070920
  Transmission Date: 20080115
  Serious: Yes (Other)
  Sender: FDA-Public Use
  Company Number: None

PATIENT
  Age: 37 Year
  Sex: Female
  Weight: 68.0396 kg

DRUGS (1)
  1. CHANTIX [Suspect]
     Indication: SMOKING CESSATION THERAPY
     Dosage: .5 DAILY FIRST 3 DAYS PO 1.0 TWICE DAILY PO
     Route: 048
     Dates: start: 20070611, end: 20070711

REACTIONS (4)
  - ABNORMAL BEHAVIOUR [None]
  - PERSONALITY CHANGE [None]
  - SCREAMING [None]
  - SPEECH DISORDER [None]
